FAERS Safety Report 12388681 (Version 1)
Quarter: 2016Q2

REPORT INFORMATION
  Report Type: Spontaneous
  Country: US (occurrence: US)
  Receive Date: 20160520
  Receipt Date: 20160520
  Transmission Date: 20160815
  Serious: No
  Sender: FDA-Public Use
  Company Number: US-PFIZER INC-2016265992

PATIENT
  Age: 73 Year
  Sex: Female
  Weight: 73.16 kg

DRUGS (3)
  1. PREDNISONE. [Interacting]
     Active Substance: PREDNISONE
     Indication: URINARY TRACT INFECTION
     Dosage: 30 MG, (FOR THREE DAYS AND THEN TO KEEP IT ON)
  2. PREDNISONE. [Interacting]
     Active Substance: PREDNISONE
     Indication: INFLAMMATION
     Dosage: 5 MG, 1X/DAY
  3. CIPROFLOXACIN. [Suspect]
     Active Substance: CIPROFLOXACIN
     Dosage: UNK

REACTIONS (2)
  - Condition aggravated [Unknown]
  - Drug interaction [Unknown]
